FAERS Safety Report 10559686 (Version 1)
Quarter: 2014Q4

REPORT INFORMATION
  Report Type: Report from Study
  Country: FR (occurrence: FR)
  Receive Date: 20141103
  Receipt Date: 20141103
  Transmission Date: 20150529
  Serious: Yes (Hospitalization)
  Sender: FDA-Public Use
  Company Number: PHHO2014FR014236

PATIENT
  Age: 75 Year
  Sex: Female
  Weight: 67 kg

DRUGS (5)
  1. LEE011 [Suspect]
     Active Substance: RIBOCICLIB
     Indication: BREAST CANCER
     Dosage: 600 MG, UNK
     Route: 048
     Dates: start: 20140911, end: 20141006
  2. DENOSUMAB [Concomitant]
     Active Substance: DENOSUMAB
     Indication: PROPHYLAXIS
     Dosage: 120 NG/ML, QMO
     Dates: start: 20140731
  3. LEE011 [Suspect]
     Active Substance: RIBOCICLIB
     Dosage: 400 MG, UNK
     Route: 048
     Dates: start: 20141020, end: 20141021
  4. COMPARATOR LETROZOLE [Suspect]
     Active Substance: LETROZOLE
     Indication: BREAST CANCER
     Dosage: 2.5 MG, UNK
     Route: 048
     Dates: start: 20140911
  5. PRETERAX                           /01421201/ [Concomitant]
     Indication: HYPERTENSION
     Dosage: 2.51 OR 625

REACTIONS (3)
  - Hepatocellular injury [Not Recovered/Not Resolved]
  - Pyrexia [Not Recovered/Not Resolved]
  - Erythema [Not Recovered/Not Resolved]

NARRATIVE: CASE EVENT DATE: 20141021
